FAERS Safety Report 5013538-3 (Version None)
Quarter: 2006Q2

REPORT INFORMATION
  Report Type: 
  Country: None (occurrence: None)
  Receive Date: 20060525
  Receipt Date: 20060501
  Transmission Date: 20061013
  Serious: Yes (Other)
  Sender: FDA-Public Use
  Company Number: US200605000624

PATIENT
  Age: 70 Year
  Sex: Female

DRUGS (3)
  1. FORTEO [Suspect]
     Indication: OSTEOPOROSIS
     Dosage: UNK
     Route: 065
     Dates: start: 20050101
  2. FORTEO PEN (FORTEO PEN) [Concomitant]
  3. ERGOCALCIFEROL (VITAMIN D) (ERGOCALCIFEROL (VITAMIN D) [Concomitant]

REACTIONS (4)
  - BLOOD CALCIUM [None]
  - BLOOD PRESSURE INCREASED [None]
  - HAEMOGLOBIN DECREASED [None]
  - PHARMACEUTICAL PRODUCT COMPLAINT [None]
